FAERS Safety Report 21093353 (Version 4)
Quarter: 2022Q3

REPORT INFORMATION
  Report Type: Report from Study
  Country: MX (occurrence: MX)
  Receive Date: 20220718
  Receipt Date: 20220819
  Transmission Date: 20221026
  Serious: No
  Sender: FDA-Public Use
  Company Number: MX-ROCHE-3135722

PATIENT
  Age: 67 Year
  Sex: Male

DRUGS (13)
  1. MIRCERA [Suspect]
     Active Substance: METHOXY POLYETHYLENE GLYCOL-EPOETIN BETA
     Indication: Chronic kidney disease
     Route: 058
     Dates: start: 20220605
  2. MIRCERA [Suspect]
     Active Substance: METHOXY POLYETHYLENE GLYCOL-EPOETIN BETA
     Indication: Renal transplant
     Route: 058
  3. MIRCERA [Suspect]
     Active Substance: METHOXY POLYETHYLENE GLYCOL-EPOETIN BETA
     Indication: Nephrogenic anaemia
  4. SIROLIMUS [Concomitant]
     Active Substance: SIROLIMUS
     Dosage: HALF TABLET
  5. TACROLIMUS [Concomitant]
     Active Substance: TACROLIMUS
     Dosage: TWO CAPSULES IN THE MORNING AND TWO CAPSULES AT NIGHT
  6. PREDNISONE [Concomitant]
     Active Substance: PREDNISONE
  7. OLMESARTAN [Concomitant]
     Active Substance: OLMESARTAN
  8. AMLODIPINE [Concomitant]
     Active Substance: AMLODIPINE BESYLATE
     Dosage: HALF OF A TABLET - IF HAD MORE THAN 145/85 IN THE AFTERNOON
  9. VIVIOPTAL [Concomitant]
     Dosage: 1 CAPSULE
  10. TEMPRA BOOST [Concomitant]
     Indication: Pain
     Dosage: 1 TABLET
  11. CLOPIDOGREL [Concomitant]
     Active Substance: CLOPIDOGREL BISULFATE
     Dosage: 1 TABLET
  12. MEMANTINE [Concomitant]
     Active Substance: MEMANTINE
     Dosage: 1 TABLET (WITHOUT SUSPENSION)
  13. FERRICOL [Concomitant]

REACTIONS (5)
  - Dizziness [Unknown]
  - Discomfort [Not Recovered/Not Resolved]
  - Discomfort [Not Recovered/Not Resolved]
  - Hypertension [Unknown]
  - Off label use [Unknown]
